FAERS Safety Report 12597695 (Version 1)
Quarter: 2016Q3

REPORT INFORMATION
  Report Type: Spontaneous
  Country: GB (occurrence: GB)
  Receive Date: 20160727
  Receipt Date: 20160727
  Transmission Date: 20161109
  Serious: Yes (Other)
  Sender: FDA-Public Use
  Company Number: GB-009507513-1607GBR011083

PATIENT
  Age: 54 Year
  Sex: Female
  Weight: 102 kg

DRUGS (23)
  1. SITAGLIPTIN PHOSPHATE [Suspect]
     Active Substance: SITAGLIPTIN PHOSPHATE
     Dosage: UNK
     Route: 048
     Dates: start: 20151009
  2. GLICLAZIDE [Concomitant]
     Active Substance: GLICLAZIDE
     Dosage: WITH BREAKFAST
     Dates: start: 20160712
  3. LANSOPRAZOLE. [Concomitant]
     Active Substance: LANSOPRAZOLE
     Dosage: 1 DF, BID
     Dates: start: 20150813
  4. METFORMIN [Concomitant]
     Active Substance: METFORMIN HYDROCHLORIDE
     Dosage: TAKE TWO WITH BREAKFAST AND TWO WITH EVENING MEAL
     Dates: start: 20150528
  5. METOCLOPRAMIDE. [Concomitant]
     Active Substance: METOCLOPRAMIDE
     Dosage: THREE TIMES DAILY
     Dates: start: 20150520
  6. BUDESONIDE. [Concomitant]
     Active Substance: BUDESONIDE
     Dosage: 2 PUFFS
     Dates: start: 20140915
  7. CETIRIZINE HYDROCHLORIDE. [Concomitant]
     Active Substance: CETIRIZINE HYDROCHLORIDE
     Dosage: 1 DF, QD
     Dates: start: 20140915
  8. DULOXETINE HYDROCHLORIDE. [Concomitant]
     Active Substance: DULOXETINE HYDROCHLORIDE
     Dosage: 1 DF, BID
     Dates: start: 20140915
  9. FLUCONAZOLE. [Concomitant]
     Active Substance: FLUCONAZOLE
     Dosage: TAKE ONE DAY 1,4 AND 7 AND ONCE WEEKLY FOR 6 MO...
     Dates: start: 20160712
  10. ADCAL (CALCIUM CARBONATE) [Concomitant]
     Active Substance: CALCIUM CARBONATE
     Dosage: 1 DF, BID
     Dates: start: 20140915
  11. ALBUTEROL. [Concomitant]
     Active Substance: ALBUTEROL
     Dosage: 2 DF, PRN
     Route: 055
     Dates: start: 20140915
  12. AMOXICILLIN. [Concomitant]
     Active Substance: AMOXICILLIN
     Dosage: 1 DF, TID
     Dates: start: 20160610, end: 20160615
  13. ATORVASTATIN [Concomitant]
     Active Substance: ATORVASTATIN
     Dosage: 1 DF, QD
     Dates: start: 20150528
  14. CARBOCYSTEINE [Concomitant]
     Active Substance: CARBOCYSTEINE
     Dosage: 2 DF, TID
     Dates: start: 20140915
  15. FUROSEMIDE. [Concomitant]
     Active Substance: FUROSEMIDE
     Dosage: EACH MORNING
     Route: 048
     Dates: start: 20140915
  16. PREDNISOLONE. [Concomitant]
     Active Substance: PREDNISOLONE
     Dosage: 6 DF, QD
     Route: 048
     Dates: start: 20160610, end: 20160617
  17. CLOTRIMAZOLE. [Concomitant]
     Active Substance: CLOTRIMAZOLE
     Dosage: APPLY 2-3 TIMES/DAY
     Dates: start: 20160712
  18. RANITIDINE. [Concomitant]
     Active Substance: RANITIDINE
     Dosage: AT NIGHT
     Dates: start: 20141104
  19. SODIUM ALGINATE [Concomitant]
     Active Substance: SODIUM ALGINATE
     Dosage: 5ML - 10ML 4 TIMES/DAY
     Dates: start: 20140915
  20. TROSPI [Concomitant]
     Active Substance: TROSPIUM CHLORIDE
     Dosage: 2 DF, QD
     Dates: start: 20151001
  21. INCRUSE ELLIPTA [Concomitant]
     Active Substance: UMECLIDINIUM BROMIDE
     Dosage: 1 DF, QD
     Route: 055
     Dates: start: 20151014
  22. IPRATROPIUM BROMIDE. [Concomitant]
     Active Substance: IPRATROPIUM BROMIDE
     Dosage: USE EVERY 4-6 HOURS TO BE TAKEN FOUR TIMES DAILY
     Dates: start: 20160308
  23. ALENDRONIC ACID [Concomitant]
     Active Substance: ALENDRONIC ACID
     Dosage: TAKE ONE WEEKLY WITH FULL GLASS OF WATER, ON AN...
     Dates: start: 20140915

REACTIONS (1)
  - Dyspnoea [Recovered/Resolved]

NARRATIVE: CASE EVENT DATE: 20160712
